FAERS Safety Report 6998685-9 (Version None)
Quarter: 2010Q3

REPORT INFORMATION
  Report Type: 
  Country: None (occurrence: None)
  Receive Date: 20100920
  Receipt Date: 20100907
  Transmission Date: 20110219
  Serious: Yes (Hospitalization, Other)
  Sender: FDA-Public Use
  Company Number: US-RB-013859-10

PATIENT
  Age: 92 Year
  Sex: Male

DRUGS (5)
  1. DELSYM [Suspect]
     Indication: COUGH
     Dosage: 1 TSP ORALLY QD OR BID
     Route: 048
     Dates: start: 20100701
  2. ASPIRIN [Concomitant]
  3. LISINOPRIL [Concomitant]
  4. MULTI-VITAMINS [Concomitant]
  5. SIMVASTATIN [Concomitant]

REACTIONS (3)
  - FAECES DISCOLOURED [None]
  - HAEMORRHAGE [None]
  - INCORRECT DRUG ADMINISTRATION DURATION [None]
